FAERS Safety Report 8610694-2 (Version None)
Quarter: 2012Q3

REPORT INFORMATION
  Report Type: 
  Country: None (occurrence: None)
  Receive Date: 20120822
  Receipt Date: 20120813
  Transmission Date: 20120928
  Serious: Yes (Other)
  Sender: FDA-Public Use
  Company Number: US-NOVOPROD-358050

PATIENT
  Age: 44 Year
  Sex: Male
  Weight: 141.3 kg

DRUGS (2)
  1. VICTOZA [Suspect]
     Indication: OBESITY
     Dosage: 0.6 MG, QD
     Route: 058
     Dates: start: 20110615
  2. VICTOZA [Suspect]
     Dosage: UNKNOWN
     Route: 058
     Dates: end: 20120711

REACTIONS (1)
  - POLYP COLORECTAL [None]
